FAERS Safety Report 4521055-X (Version None)
Quarter: 2004Q4

REPORT INFORMATION
  Report Type: 
  Country: None (occurrence: None)
  Receive Date: 20041206
  Receipt Date: 20041124
  Transmission Date: 20050328
  Serious: Yes (Life-Threatening, Hospitalization)
  Sender: FDA-Public Use
  Company Number: STA-AE-04-MTX-555

PATIENT
  Age: 83 Year
  Sex: Female

DRUGS (10)
  1. METHOTREXATE [Suspect]
     Indication: RHEUMATOID ARTHRITIS
     Dosage: ORAL
     Route: 048
     Dates: end: 20030801
  2. METHOTREXATE [Suspect]
     Indication: RHEUMATOID ARTHRITIS
     Dosage: 7.5 MG 1X PER 1 WK, ORAL
     Route: 048
     Dates: start: 20040223, end: 20041027
  3. RISEDRONATE SODIUM [Concomitant]
  4. ASPIRIN [Concomitant]
  5. ADALAT [Concomitant]
  6. DIOVAN [Concomitant]
  7. PREDNISOLONE [Concomitant]
  8. NIZATIDINE [Concomitant]
  9. LOXONIN(LOXOPROFEN SODIUM) [Concomitant]
  10. ALFACALCIDOL (ALFACALCIDOL) [Concomitant]

REACTIONS (10)
  - ARTHRALGIA [None]
  - BONE MARROW DEPRESSION [None]
  - FEMUR FRACTURE [None]
  - HYPOXIA [None]
  - LUNG DISORDER [None]
  - MALAISE [None]
  - PANCYTOPENIA [None]
  - PYREXIA [None]
  - RESPIRATORY DISTRESS [None]
  - RESPIRATORY FAILURE [None]
